FAERS Safety Report 23820364 (Version 2)
Quarter: 2024Q2

REPORT INFORMATION
  Report Type: Spontaneous
  Country: IT (occurrence: IT)
  Receive Date: 20240506
  Receipt Date: 20240508
  Transmission Date: 20240716
  Serious: Yes (Hospitalization, Other)
  Sender: FDA-Public Use
  Company Number: None

PATIENT
  Age: 64 Year
  Sex: Female

DRUGS (2)
  1. CYMBALTA [Suspect]
     Active Substance: DULOXETINE HYDROCHLORIDE
     Indication: Post herpetic neuralgia
     Dosage: 30 MG, BID (EVERY 12 HOURS)
     Route: 048
     Dates: start: 20240408, end: 20240416
  2. OXCARBAZEPINE [Suspect]
     Active Substance: OXCARBAZEPINE
     Indication: Post herpetic neuralgia
     Dosage: 300 MG, BID (EVERY 12 HOURS)
     Route: 048
     Dates: start: 20240408, end: 20240416

REACTIONS (6)
  - Ocular discomfort [Recovering/Resolving]
  - Drug reaction with eosinophilia and systemic symptoms [Recovering/Resolving]
  - Off label use [Recovering/Resolving]
  - Pruritus [Recovering/Resolving]
  - Rash papular [Recovering/Resolving]
  - Drug hypersensitivity [Recovering/Resolving]

NARRATIVE: CASE EVENT DATE: 20240408
